FAERS Safety Report 7944095 (Version 2)
Quarter: 2013Q1

REPORT INFORMATION
  Report Type: Report from Study
  Country: FR (occurrence: FR)
  Receive Date: 20110513
  Receipt Date: 20130110
  Transmission Date: 20140127
  Serious: Yes (Other)
  Sender: FDA-Public Use
  Company Number: FR-SANOFI-AVENTIS-2011SA027196

PATIENT
  Sex: 0

DRUGS (2)
  1. CABAZITAXEL [Suspect]
     Indication: BREAST CANCER
     Dosage: ADMINISTERED ON DAY 1
     Route: 042
  2. CAPECITABINE [Suspect]
     Indication: BREAST CANCER
     Dosage: ADMINISTERED EVERY THREE WEEKS.
     Route: 048

REACTIONS (6)
  - Neutropenic colitis [Unknown]
  - Palmar-plantar erythrodysaesthesia syndrome [Unknown]
  - Asthenia [Unknown]
  - Neutropenia [Unknown]
  - Neutropenic infection [Unknown]
  - Febrile neutropenia [Unknown]
